FAERS Safety Report 24395649 (Version 1)
Quarter: 2024Q4

REPORT INFORMATION
  Report Type: Spontaneous
  Country: HK (occurrence: HK)
  Receive Date: 20241004
  Receipt Date: 20241004
  Transmission Date: 20250115
  Serious: Yes (Other)
  Sender: TEVA
  Company Number: AU-TEVA-VS-3247612

PATIENT
  Sex: Male

DRUGS (1)
  1. AZILECT [Suspect]
     Active Substance: RASAGILINE MESYLATE
     Indication: Product used for unknown indication
     Dosage: BEEN TAKING FOR 3 MONTHS
     Route: 065
     Dates: start: 2024

REACTIONS (2)
  - Orthostatic hypotension [Unknown]
  - Dizziness postural [Unknown]

NARRATIVE: CASE EVENT DATE: 20240101
